FAERS Safety Report 11350501 (Version 1)
Quarter: 2015Q3

REPORT INFORMATION
  Report Type: Spontaneous
  Country: US (occurrence: None)
  Receive Date: 20150805
  Receipt Date: 20150805
  Transmission Date: 20151125
  Serious: No
  Sender: FDA-Public Use
  Company Number: None

PATIENT
  Age: 29 Year
  Sex: Male

DRUGS (16)
  1. GABAPENTIN. [Concomitant]
     Active Substance: GABAPENTIN
  2. HYDROMORPHONE [Concomitant]
     Active Substance: HYDROMORPHONE
  3. LANSOPRAZOLE. [Concomitant]
     Active Substance: LANSOPRAZOLE
  4. PHYTONADIONE. [Concomitant]
     Active Substance: PHYTONADIONE
  5. COLISTIMETHATE [Suspect]
     Active Substance: COLISTIMETHATE SODIUM
     Indication: URINARY TRACT INFECTION
     Dosage: VARYING  EVERY 12 HOURS IV
     Route: 042
     Dates: start: 20141114
  6. IMIPENEM AND CILASTATIN [Concomitant]
     Active Substance: CILASTATIN SODIUM\IMIPENEM
  7. ASPIRIN. [Concomitant]
     Active Substance: ASPIRIN
  8. FLUCONAZOLE. [Concomitant]
     Active Substance: FLUCONAZOLE
  9. MEROPENEM. [Concomitant]
     Active Substance: MEROPENEM
  10. PROMETHAZINE [Concomitant]
     Active Substance: PROMETHAZINE\PROMETHAZINE HYDROCHLORIDE
  11. TEMAZEPAM. [Concomitant]
     Active Substance: TEMAZEPAM
  12. TPN [Concomitant]
     Active Substance: AMINO ACIDS\DEXTROSE\ELECTROLYTES NOS\SOYBEAN OIL
  13. HEPARIN [Concomitant]
     Active Substance: HEPARIN SODIUM
  14. LORAZEPAM. [Concomitant]
     Active Substance: LORAZEPAM
  15. SCOPOLAMINE [Concomitant]
     Active Substance: SCOPOLAMINE
  16. METHADONE [Concomitant]
     Active Substance: METHADONE HYDROCHLORIDE

REACTIONS (1)
  - Blood creatinine increased [None]

NARRATIVE: CASE EVENT DATE: 20141120
